FAERS Safety Report 9310219 (Version 2)
Quarter: 2013Q2

REPORT INFORMATION
  Report Type: Report from Study
  Country: CA (occurrence: CA)
  Receive Date: 20130527
  Receipt Date: 20130627
  Transmission Date: 20140414
  Serious: Yes (Hospitalization)
  Sender: FDA-Public Use
  Company Number: PHHY2013CA052260

PATIENT
  Sex: Male

DRUGS (1)
  1. SANDOSTATIN LAR [Suspect]
     Indication: CROHN^S DISEASE
     Dosage: 20 MG, ONCE A MONTH
     Route: 030
     Dates: start: 20080601

REACTIONS (1)
  - Back disorder [Unknown]
